FAERS Safety Report 6011419-X (Version None)
Quarter: 2008Q4

REPORT INFORMATION
  Report Type: 
  Country: None (occurrence: None)
  Receive Date: 20081218
  Receipt Date: 19981201
  Transmission Date: 20090506
  Serious: Yes (Death, Hospitalization)
  Sender: FDA-Public Use
  Company Number: US-ROCHE-110073

PATIENT
  Age: 26 Month
  Sex: Male

DRUGS (2)
  1. GANCICLOVIR SODIUM [Suspect]
     Route: 042
     Dates: start: 19960903, end: 19961015
  2. PLACEBO [Suspect]
     Dosage: PLACEBO TAKEN WHILE ENROLLED IN STUDY (GANS049/CYT049).
     Route: 065
     Dates: start: 19960816, end: 19960903

REACTIONS (3)
  - DEATH [None]
  - PYREXIA [None]
  - RESPIRATORY TRACT INFECTION [None]
